FAERS Safety Report 17153191 (Version 1)
Quarter: 2019Q4

REPORT INFORMATION
  Report Type: Spontaneous
  Country: US (occurrence: US)
  Receive Date: 20191213
  Receipt Date: 20191213
  Transmission Date: 20200122
  Serious: Yes (Death)
  Sender: FDA-Public Use
  Company Number: US-PFIZER INC-2019537673

PATIENT
  Sex: Female

DRUGS (1)
  1. BESPONSA [Suspect]
     Active Substance: INOTUZUMAB OZOGAMICIN
     Indication: B-CELL TYPE ACUTE LEUKAEMIA
     Dosage: UNK

REACTIONS (1)
  - Venoocclusive liver disease [Fatal]
